FAERS Safety Report 13940457 (Version 1)
Quarter: 2017Q3

REPORT INFORMATION
  Report Type: Spontaneous
  Country: CN (occurrence: CN)
  Receive Date: 20170906
  Receipt Date: 20170906
  Transmission Date: 20171127
  Serious: Yes (Other)
  Sender: FDA-Public Use
  Company Number: CN-NORTHSTAR HEALTHCARE HOLDINGS-CN-2017NSR000190

PATIENT

DRUGS (1)
  1. PROPRANOLOL HYDROCHLORIDE. [Suspect]
     Active Substance: PROPRANOLOL HYDROCHLORIDE
     Indication: HAEMANGIOMA
     Dosage: 2 MG/KG, QD

REACTIONS (1)
  - Hyperkalaemia [Recovered/Resolved]
